FAERS Safety Report 6289345-0 (Version None)
Quarter: 2009Q3

REPORT INFORMATION
  Report Type: 
  Country: None (occurrence: None)
  Receive Date: 20090728
  Receipt Date: 20090728
  Transmission Date: 20100115
  Serious: Yes (Other)
  Sender: FDA-Public Use
  Company Number: None

PATIENT
  Age: 35 Year
  Sex: Female
  Weight: 63.5036 kg

DRUGS (2)
  1. AVELOX [Suspect]
     Indication: NASAL ABSCESS
     Dosage: 400 MG 1 PER DAY PO
     Route: 048
     Dates: start: 20090721, end: 20090721
  2. AVELOX [Suspect]
     Indication: SKIN INFECTION
     Dosage: 400 MG 1 PER DAY PO
     Route: 048
     Dates: start: 20090721, end: 20090721

REACTIONS (12)
  - ASTHENIA [None]
  - CHEST PAIN [None]
  - CONFUSIONAL STATE [None]
  - DISCOMFORT [None]
  - DIZZINESS [None]
  - FATIGUE [None]
  - FEELING DRUNK [None]
  - INSOMNIA [None]
  - MUSCULAR WEAKNESS [None]
  - NAUSEA [None]
  - REFUSAL OF TREATMENT BY PATIENT [None]
  - TREMOR [None]
